FAERS Safety Report 6308363-7 (Version None)
Quarter: 2009Q3

REPORT INFORMATION
  Report Type: 
  Country: None (occurrence: None)
  Receive Date: 20090813
  Receipt Date: 20090803
  Transmission Date: 20100115
  Serious: Yes (Other)
  Sender: FDA-Public Use
  Company Number: JP-B.I. PHARMACEUTICALS,INC./RIDGEFIELD-2009-DE-04272GD

PATIENT
  Age: 70 Year
  Sex: Male

DRUGS (13)
  1. PERSANTINE [Suspect]
     Route: 048
  2. ARGAMATE [Suspect]
  3. NORVASC [Suspect]
     Route: 048
  4. FRANDOL [Suspect]
     Route: 062
  5. OXAROL [Suspect]
  6. VASOLAN [Suspect]
     Indication: ARRHYTHMIA
     Route: 042
  7. PHOSBLOCK [Concomitant]
     Route: 048
  8. D-SORBITOL [Concomitant]
  9. PHARLODINE [Concomitant]
     Route: 048
  10. PROMAC [Concomitant]
     Route: 048
  11. ALOSENN [Concomitant]
  12. ALLOPURINOL [Concomitant]
     Route: 048
  13. NESP [Concomitant]

REACTIONS (5)
  - ATRIAL FIBRILLATION [None]
  - CARDIAC FAILURE [None]
  - CHEST DISCOMFORT [None]
  - HAEMORRHAGE SUBCUTANEOUS [None]
  - SUPRAVENTRICULAR TACHYCARDIA [None]
